APPROVED DRUG PRODUCT: ACIPHEX
Active Ingredient: RABEPRAZOLE SODIUM
Strength: 10MG **Federal Register determination that product was not discontinued or withdrawn for safety or effectiveness reasons**
Dosage Form/Route: TABLET, DELAYED RELEASE;ORAL
Application: N020973 | Product #001
Applicant: WAYLIS THERAPEUTICS LLC
Approved: May 29, 2002 | RLD: Yes | RS: No | Type: DISCN